FAERS Safety Report 23241934 (Version 1)
Quarter: 2023Q4

REPORT INFORMATION
  Report Type: Spontaneous
  Country: CN (occurrence: None)
  Receive Date: 20231129
  Receipt Date: 20231129
  Transmission Date: 20240109
  Serious: Yes (Hospitalization, Other)
  Sender: FDA-Public Use
  Company Number: 2023A266301

PATIENT
  Age: 74 Year
  Sex: Male

DRUGS (2)
  1. GEFITINIB [Suspect]
     Active Substance: GEFITINIB
     Indication: Lung adenocarcinoma stage IV
     Route: 048
  2. OSIMERTINIB [Suspect]
     Active Substance: OSIMERTINIB
     Indication: Lung adenocarcinoma stage IV
     Route: 048

REACTIONS (6)
  - Drug resistance [Unknown]
  - Acquired gene mutation [Unknown]
  - EGFR gene mutation [Unknown]
  - Toxicity to various agents [Recovered/Resolved]
  - Dilated cardiomyopathy [Recovered/Resolved]
  - Cardiac failure congestive [Recovered/Resolved]
